FAERS Safety Report 6733889-1 (Version None)
Quarter: 2010Q2

REPORT INFORMATION
  Report Type: 
  Country: None (occurrence: None)
  Receive Date: 20100520
  Receipt Date: 20100511
  Transmission Date: 20101027
  Serious: Yes (Life-Threatening, Hospitalization, Other)
  Sender: FDA-Public Use
  Company Number: US-ROCHE-698902

PATIENT
  Sex: Female
  Weight: 87.1 kg

DRUGS (26)
  1. HERCEPTIN [Suspect]
     Indication: BREAST CANCER
     Dosage: DISCONTINUED.
     Route: 042
     Dates: start: 20090921, end: 20091214
  2. HERCEPTIN [Suspect]
     Dosage: REPORTED AS FREQUENCY 1 DOSE,  6 TH CYCLE.
     Route: 042
     Dates: start: 20100301
  3. TAXOTERE [Suspect]
     Indication: BREAST CANCER
     Dosage: REPORTED AS PATIENT RECEIVED 6 CYCLES.
     Route: 065
     Dates: start: 20090921
  4. CARBOPLATIN [Suspect]
     Indication: BREAST CANCER
     Dosage: REPORTED AS PATIENT RECEIVED 6 CYCLES.
     Route: 065
     Dates: start: 20090921
  5. ATENOLOL [Concomitant]
     Dosage: FREQUENCY: DAILY.
  6. CELEBREX [Concomitant]
     Dosage: FREQUENCY: DAILY.
     Route: 048
  7. IBUPROFEN [Concomitant]
     Dosage: DOSE: PRN.
     Dates: start: 20091227
  8. ALLEGRA [Concomitant]
     Dosage: FREQUENCY: AS NEEDED.
     Route: 048
     Dates: start: 20091227
  9. MUCINEX [Concomitant]
     Dosage: FREQUENCY: DAILY.
     Route: 048
     Dates: start: 20091227
  10. ASPIRIN [Concomitant]
     Dosage: FREQUENCY: DAILY.
     Dates: start: 20091227
  11. VITAMIN C [Concomitant]
     Route: 048
  12. VITAMIN E [Concomitant]
     Dosage: DRUG REPORTED: VITAMIN E COMPLEX.
     Route: 048
     Dates: start: 20091227
  13. MULTIVITAMIN NOS [Concomitant]
     Dosage: FREQUENCY: DAILY.
     Route: 048
     Dates: start: 20091227
  14. CALCIUM [Concomitant]
     Dates: start: 20091227
  15. MAGNESIUM [Concomitant]
     Dates: start: 20091227
  16. ZINC TABLETS [Concomitant]
     Dosage: FREQUENCY: DAILY.
     Dates: start: 20091227
  17. NASONEX [Concomitant]
     Dosage: ROUTE: NASAL.  FREQUENCY : AS NEEDED
     Dates: start: 20091227
  18. WELCHOL [Concomitant]
     Dosage: WITH LARGEST MEAL.
     Dates: start: 20091227
  19. MULTIVITAMIN [Concomitant]
     Route: 048
     Dates: start: 20091227
  20. FISH OIL [Concomitant]
  21. GLUCOSAMINE [Concomitant]
     Route: 048
     Dates: start: 20091227
  22. CHONDROITIN [Concomitant]
     Route: 048
     Dates: start: 20091227
  23. COLLAGEN [Concomitant]
     Route: 048
     Dates: start: 20091227
  24. HYALEIN [Concomitant]
     Route: 048
     Dates: start: 20091227
  25. VITAMIN B6 [Concomitant]
     Dosage: FREQUENCY: DAILY.
     Route: 048
     Dates: start: 20091227
  26. COZAAR [Concomitant]
     Dosage: FREQUENCY: DAILY.
     Dates: start: 20091227

REACTIONS (4)
  - COAGULOPATHY [None]
  - LEUKOCYTOSIS [None]
  - PERFORATED ULCER [None]
  - ULCER HAEMORRHAGE [None]
